FAERS Safety Report 15694728 (Version 1)
Quarter: 2018Q4

REPORT INFORMATION
  Report Type: Spontaneous
  Country: GB (occurrence: GB)
  Receive Date: 20181206
  Receipt Date: 20181206
  Transmission Date: 20190205
  Serious: Yes (Other)
  Sender: FDA-Public Use
  Company Number: GB-PFIZER INC-2018495173

PATIENT
  Age: 52 Year
  Sex: Male
  Weight: 73 kg

DRUGS (12)
  1. DORZOLAMIDE [Concomitant]
     Active Substance: DORZOLAMIDE
     Dosage: 1 GTT, 1X/DAY RIGHT EYE.
     Route: 031
  2. RAMIPRIL. [Concomitant]
     Active Substance: RAMIPRIL
     Dosage: 10 MG, 1X/DAY
     Route: 048
  3. ATORVASTATIN [Concomitant]
     Active Substance: ATORVASTATIN
     Dosage: 40 MG, 1X/DAY AT NIGHT.
     Route: 048
  4. CINNARIZINE [Concomitant]
     Active Substance: CINNARIZINE
     Dosage: 30 MG, 1X/DAY IN THE MORNING.
     Route: 048
  5. TAZOCIN [Suspect]
     Active Substance: PIPERACILLIN SODIUM\TAZOBACTAM SODIUM
     Indication: OSTEOMYELITIS
     Dosage: 4.5 G, UNK
     Route: 042
     Dates: start: 20180911, end: 20180928
  6. TIMOLOL. [Concomitant]
     Active Substance: TIMOLOL
     Dosage: 1 GTT, 1X/DAY (RIGHT EYE).
     Route: 031
  7. AMLODIPINE [Concomitant]
     Active Substance: AMLODIPINE BESYLATE
     Dosage: 10 MG, 1X/DAY
     Route: 048
  8. CITALOPRAM [Concomitant]
     Active Substance: CITALOPRAM HYDROBROMIDE
     Dosage: 10 MG, 1X/DAY IN THE MORNING.
     Route: 048
  9. OMEPRAZOLE. [Concomitant]
     Active Substance: OMEPRAZOLE
     Dosage: 80 MG, 1X/DAY
     Route: 048
  10. METFORMIN [Concomitant]
     Active Substance: METFORMIN HYDROCHLORIDE
     Dosage: 1000 MG, 1X/DAY
     Route: 048
  11. LUMIGAN [Concomitant]
     Active Substance: BIMATOPROST
     Dosage: 10 UG/ML, UNK  (AT NIGHT. 100MICROGRAMS/ML.)
     Route: 031
  12. PARACETAMOL [Concomitant]
     Active Substance: ACETAMINOPHEN
     Dosage: 4 G, 1X/DAY (2 X 500MG)
     Route: 048

REACTIONS (2)
  - Neutropenic sepsis [Unknown]
  - Neutropenia [Recovered/Resolved]

NARRATIVE: CASE EVENT DATE: 20180927
